FAERS Safety Report 21890904 (Version 1)
Quarter: 2023Q1

REPORT INFORMATION
  Report Type: Spontaneous
  Country: FR (occurrence: FR)
  Receive Date: 20230120
  Receipt Date: 20230120
  Transmission Date: 20230417
  Serious: Yes (Other)
  Sender: FDA-Public Use
  Company Number: FR-BAXTER-2022BAX026483

PATIENT
  Sex: Male

DRUGS (2)
  1. EXTRANEAL [Suspect]
     Active Substance: CALCIUM CHLORIDE\ICODEXTRIN\MAGNESIUM CHLORIDE\SODIUM CHLORIDE\SODIUM LACTATE
     Indication: Peritoneal dialysis
     Dosage: 1 PER DAY
     Route: 033
     Dates: start: 202205
  2. NUTRINEAL PD4 [Suspect]
     Active Substance: AMINO ACIDS\CALCIUM CHLORIDE\MAGNESIUM CHLORIDE\SODIUM CHLORIDE\SODIUM LACTATE
     Indication: Peritoneal dialysis
     Dosage: 1.5L PER DAY,DURING MEALS
     Route: 033
     Dates: start: 202210

REACTIONS (8)
  - Peritoneal dialysis complication [Unknown]
  - Peritonitis bacterial [Recovering/Resolving]
  - Blood albumin decreased [Recovered/Resolved]
  - C-reactive protein increased [Recovered/Resolved]
  - Nutritional condition abnormal [Not Recovered/Not Resolved]
  - Nasopharyngitis [Unknown]
  - Blood urea decreased [Unknown]
  - Blood creatinine decreased [Unknown]

NARRATIVE: CASE EVENT DATE: 20220801
